FAERS Safety Report 13946874 (Version 1)
Quarter: 2017Q3

REPORT INFORMATION
  Report Type: Spontaneous
  Country: US (occurrence: US)
  Receive Date: 20170907
  Receipt Date: 20170907
  Transmission Date: 20171128
  Serious: Yes (Hospitalization, Other)
  Sender: FDA-Public Use
  Company Number: US-ZYDUS-016352

PATIENT
  Age: 10 Month
  Sex: Female

DRUGS (1)
  1. OXYCODONE [Suspect]
     Active Substance: OXYCODONE
     Indication: PRODUCT USED FOR UNKNOWN INDICATION
     Route: 048

REACTIONS (22)
  - Hypoperfusion [Recovered/Resolved]
  - Toxicity to various agents [Recovered/Resolved]
  - Dyspnoea [Recovered/Resolved]
  - Metabolic acidosis [Recovered/Resolved]
  - Brain oedema [Recovered/Resolved]
  - Hyperreflexia [Recovered/Resolved]
  - Hypertension [Recovered/Resolved]
  - Unresponsive to stimuli [Recovered/Resolved]
  - Leukocytosis [Recovered/Resolved]
  - Depressed level of consciousness [Recovered/Resolved]
  - Accidental exposure to product [Unknown]
  - Respiratory acidosis [Recovered/Resolved]
  - Bradypnoea [Recovered/Resolved]
  - Pupillary reflex impaired [Recovered/Resolved]
  - Hypertonia [Recovered/Resolved]
  - Transaminases increased [Recovered/Resolved]
  - Accidental overdose [Unknown]
  - Hydrocephalus [Recovered/Resolved]
  - Brain herniation [Recovered/Resolved]
  - Respiratory failure [Recovered/Resolved]
  - Haemorrhagic infarction [Recovered/Resolved]
  - Stridor [Recovered/Resolved]
